FAERS Safety Report 6810936-X (Version None)
Quarter: 2010Q2

REPORT INFORMATION
  Report Type: 
  Country: None (occurrence: None)
  Receive Date: 20100630
  Receipt Date: 20081119
  Transmission Date: 20101027
  Serious: No
  Sender: FDA-Public Use
  Company Number: US-PFIZER INC-2008089461

PATIENT
  Sex: Female
  Weight: 100 kg

DRUGS (5)
  1. NICOTROL [Suspect]
     Indication: SMOKING CESSATION THERAPY
     Dates: start: 20081001
  2. VALSARTAN [Concomitant]
  3. ELAVIL [Concomitant]
  4. HYDROCODONE [Concomitant]
  5. ABILIFY [Concomitant]

REACTIONS (2)
  - COUGH [None]
  - DRUG INEFFECTIVE [None]
